FAERS Safety Report 17771739 (Version 1)
Quarter: 2020Q2

REPORT INFORMATION
  Report Type: Spontaneous
  Country: IT (occurrence: IT)
  Receive Date: 20200512
  Receipt Date: 20200512
  Transmission Date: 20200714
  Serious: Yes (Hospitalization)
  Sender: FDA-Public Use
  Company Number: IT-JNJFOC-20200426070

PATIENT
  Age: 72 Year
  Sex: Female

DRUGS (4)
  1. AMITRIPTYLINE [Interacting]
     Active Substance: AMITRIPTYLINE
     Indication: PRODUCT USED FOR UNKNOWN INDICATION
     Route: 065
  2. DUROGESIC [Suspect]
     Active Substance: FENTANYL
     Indication: PRODUCT USED FOR UNKNOWN INDICATION
     Route: 065
  3. NABIXIMOLS [Interacting]
     Active Substance: NABIXIMOLS
     Indication: PRODUCT USED FOR UNKNOWN INDICATION
     Dosage: FORMULATION: OIL
     Route: 048
  4. PREGABALIN. [Interacting]
     Active Substance: PREGABALIN
     Indication: PRODUCT USED FOR UNKNOWN INDICATION
     Route: 065

REACTIONS (4)
  - Drug interaction [Unknown]
  - Hypoxia [Unknown]
  - Syncope [Unknown]
  - Sedation [Unknown]
